FAERS Safety Report 7589845-7 (Version None)
Quarter: 2011Q3

REPORT INFORMATION
  Report Type: 
  Country: None (occurrence: None)
  Receive Date: 20110705
  Receipt Date: 20110622
  Transmission Date: 20111222
  Serious: Yes (Disabling, Other)
  Sender: FDA-Public Use
  Company Number: GB-SANOFI-AVENTIS-2011SA039667

PATIENT
  Age: 33 Year
  Sex: Male
  Weight: 88 kg

DRUGS (1)
  1. LANTUS [Suspect]
     Route: 058
     Dates: start: 20101230, end: 20110413

REACTIONS (3)
  - DEPRESSION [None]
  - ANXIETY [None]
  - ANGER [None]
